FAERS Safety Report 4383279-4 (Version None)
Quarter: 2004Q2

REPORT INFORMATION
  Report Type: 
  Country: None (occurrence: None)
  Receive Date: 20040622
  Receipt Date: 20040622
  Transmission Date: 20050107
  Serious: Yes (Hospitalization, Other)
  Sender: FDA-Public Use
  Company Number: None

PATIENT
  Age: 58 Year
  Sex: Male

DRUGS (3)
  1. GEMFIBROZIL [Suspect]
     Dosage: 600 MG PO BID
     Route: 048
  2. SIMVASTATIN [Suspect]
     Dosage: 40 MG QHS
     Dates: start: 20031103
  3. CELEXA [Suspect]
     Indication: DEPRESSION
     Dosage: 40 MG QHS/ DOUBLE DOSE OF CITALOPRAM 1  WEEK PRIOR TO RXN
     Dates: start: 20031130

REACTIONS (3)
  - ALCOHOL USE [None]
  - RHABDOMYOLYSIS [None]
  - SELF-MEDICATION [None]
